FAERS Safety Report 8339209-3 (Version None)
Quarter: 2012Q2

REPORT INFORMATION
  Report Type: 
  Country: None (occurrence: None)
  Receive Date: 20120507
  Receipt Date: 20120502
  Transmission Date: 20120825
  Serious: Yes (Death)
  Sender: FDA-Public Use
  Company Number: JP-SANOFI-AVENTIS-2012SA020782

PATIENT
  Age: 61 Year
  Sex: Male

DRUGS (7)
  1. ITAVASTATIN [Suspect]
     Route: 048
  2. PLAVIX [Suspect]
     Route: 048
     Dates: start: 20100801, end: 20101101
  3. MIGLITOL [Suspect]
     Route: 048
     Dates: start: 20100801, end: 20101101
  4. AMARYL [Suspect]
     Route: 048
     Dates: start: 20100801, end: 20101101
  5. ASPIRIN [Suspect]
     Route: 048
  6. JANUVIA [Suspect]
     Route: 048
  7. MUCOSTA [Suspect]
     Route: 048

REACTIONS (1)
  - DRUG-INDUCED LIVER INJURY [None]
